FAERS Safety Report 8196638-9 (Version None)
Quarter: 2012Q1

REPORT INFORMATION
  Report Type: 
  Country: None (occurrence: None)
  Receive Date: 20120309
  Receipt Date: 20120306
  Transmission Date: 20120608
  Serious: Yes (Hospitalization)
  Sender: FDA-Public Use
  Company Number: JP-BAYER-2011-079669

PATIENT
  Age: 85 Year
  Sex: Male

DRUGS (6)
  1. DIART [Suspect]
     Dosage: DAILY DOSE 30 MG
     Route: 048
     Dates: start: 20110222
  2. NEXAVAR [Suspect]
     Dosage: 400 MG DAILY
     Dates: start: 20110914, end: 20111011
  3. NEXAVAR [Suspect]
     Dosage: 200 MG DAILY
     Dates: start: 20111012
  4. NEXAVAR [Suspect]
     Indication: RENAL CELL CARCINOMA
     Dosage: 400 MG DAILY
     Route: 048
     Dates: start: 20110222, end: 20110822
  5. AMLODIPINE BESYLATE [Suspect]
     Dosage: DAILY DOSE 5 MG
     Route: 048
     Dates: start: 20110222
  6. KELNAC [Suspect]
     Dosage: DAILY DOSE 80 MG
     Route: 048
     Dates: start: 20110222

REACTIONS (1)
  - COLITIS ISCHAEMIC [None]
